FAERS Safety Report 7594787-7 (Version None)
Quarter: 2011Q2

REPORT INFORMATION
  Report Type: 
  Country: None (occurrence: None)
  Receive Date: 20110614
  Receipt Date: 20100922
  Transmission Date: 20111010
  Serious: Yes (Hospitalization)
  Sender: FDA-Public Use
  Company Number: 2010-12703

PATIENT
  Age: 70 Year
  Sex: Female
  Weight: 56 kg

DRUGS (1)
  1. FIORINAL [Suspect]
     Indication: MIGRAINE
     Dosage: 1 CAPSULE, TWICE DAILY, 8XDAILY
     Dates: end: 19800101

REACTIONS (1)
  - DEPENDENCE [None]
